FAERS Safety Report 13425260 (Version 2)
Quarter: 2017Q2

REPORT INFORMATION
  Report Type: Report from Study
  Country: None (occurrence: US)
  Receive Date: 20170411
  Receipt Date: 20170527
  Transmission Date: 20170830
  Serious: Yes (Death, Hospitalization, Other)
  Sender: FDA-Public Use
  Company Number: US-ABBVIE-17K-163-1935398-00

PATIENT
  Age: 78 Year
  Sex: Male

DRUGS (2)
  1. HUMIRA [Suspect]
     Active Substance: ADALIMUMAB
     Route: 058
     Dates: start: 20170315, end: 20170315
  2. HUMIRA [Suspect]
     Active Substance: ADALIMUMAB
     Indication: COLITIS ULCERATIVE
     Route: 058
     Dates: start: 20170308, end: 20170308

REACTIONS (12)
  - Gastrointestinal motility disorder [Unknown]
  - Nausea [Recovered/Resolved]
  - Incontinence [Recovered/Resolved]
  - Coma [Unknown]
  - Intestinal polyp [Unknown]
  - Blood count abnormal [Recovered/Resolved]
  - Intestinal ischaemia [Recovered/Resolved]
  - Vomiting [Recovered/Resolved]
  - Colitis ulcerative [Recovered/Resolved]
  - Cardiac arrest [Fatal]
  - Internal haemorrhage [Recovered/Resolved]
  - Abdominal distension [Recovered/Resolved]

NARRATIVE: CASE EVENT DATE: 201703
